FAERS Safety Report 7061095-2 (Version None)
Quarter: 2010Q4

REPORT INFORMATION
  Report Type: 
  Country: None (occurrence: None)
  Receive Date: 20101026
  Receipt Date: 20101020
  Transmission Date: 20110411
  Serious: Yes (Hospitalization, Other)
  Sender: FDA-Public Use
  Company Number: GR-PFIZER INC-2010133095

PATIENT
  Age: 59 Year
  Sex: Male

DRUGS (2)
  1. METHYLPREDNISOLONE [Suspect]
     Indication: EPIGLOTTITIS
     Dosage: 1 G, UNK
  2. ADRENALINE [Suspect]
     Indication: EPIGLOTTITIS
     Dosage: UNK
     Route: 055

REACTIONS (1)
  - EPIGLOTTITIS [None]
